FAERS Safety Report 12142579 (Version 2)
Quarter: 2016Q1

REPORT INFORMATION
  Report Type: Report from Study
  Country: US (occurrence: US)
  Receive Date: 20160303
  Receipt Date: 20160330
  Transmission Date: 20160526
  Serious: Yes (Death)
  Sender: FDA-Public Use
  Company Number: US-ACTELION-A-NJ2016-132157

PATIENT
  Age: 86 Year
  Sex: Female

DRUGS (1)
  1. MACITENTAN [Suspect]
     Active Substance: MACITENTAN
     Indication: PULMONARY ARTERIAL HYPERTENSION
     Dosage: UNK
     Route: 048
     Dates: start: 20140423, end: 20160205

REACTIONS (4)
  - Fatigue [Unknown]
  - Renal failure [Fatal]
  - Oxygen saturation decreased [Unknown]
  - Weight decreased [Unknown]
